FAERS Safety Report 7020140-0 (Version None)
Quarter: 2010Q3

REPORT INFORMATION
  Report Type: 
  Country: None (occurrence: None)
  Receive Date: 20100927
  Receipt Date: 20100912
  Transmission Date: 20110219
  Serious: Yes (Hospitalization)
  Sender: FDA-Public Use
  Company Number: UTC-001446

PATIENT
  Age: 69 Year
  Sex: Female

DRUGS (2)
  1. REMODULIN [Suspect]
     Indication: PULMONARY HYPERTENSION
     Dosage: SUBCUTANEOUS
     Route: 058
     Dates: start: 20100101
  2. REVATIO [Concomitant]

REACTIONS (9)
  - ABDOMINAL PAIN [None]
  - ATRIAL FIBRILLATION [None]
  - CHEST PAIN [None]
  - HAEMATEMESIS [None]
  - MITRAL VALVE INCOMPETENCE [None]
  - SINUS TACHYCARDIA [None]
  - STRESS CARDIOMYOPATHY [None]
  - SUPRAVENTRICULAR EXTRASYSTOLES [None]
  - TROPONIN INCREASED [None]
